FAERS Safety Report 6019661-9 (Version None)
Quarter: 2008Q4

REPORT INFORMATION
  Report Type: 
  Country: None (occurrence: None)
  Receive Date: 20081223
  Receipt Date: 20080206
  Transmission Date: 20090506
  Serious: Yes (Other)
  Sender: FDA-Public Use
  Company Number: US-WYE-H02527208

PATIENT
  Age: 50 Year
  Sex: Male
  Weight: 99.88 kg

DRUGS (2)
  1. PRIMATENE MIST [Suspect]
     Indication: CHEST DISCOMFORT
     Dosage: ^ 1 PUFF 2 TIMES IN ONE DAY^, INHALATION
     Route: 055
     Dates: start: 20080205, end: 20080205
  2. MUCINEX [Concomitant]

REACTIONS (1)
  - DIARRHOEA [None]
